FAERS Safety Report 18543559 (Version 2)
Quarter: 2020Q4

REPORT INFORMATION
  Report Type: Report from Study
  Country: CA (occurrence: CA)
  Receive Date: 20201124
  Receipt Date: 20201209
  Transmission Date: 20210114
  Serious: Yes (Hospitalization, Other)
  Sender: FDA-Public Use
  Company Number: CA-SHIRE-CA201935835AA

PATIENT
  Age: 73 Year
  Sex: Male
  Weight: 67.7 kg

DRUGS (9)
  1. NORVASK [AMLODIPINE] [Concomitant]
     Indication: PRODUCT USED FOR UNKNOWN INDICATION
     Dosage: UNK
     Route: 065
  2. LIPITOR [Concomitant]
     Active Substance: ATORVASTATIN CALCIUM
     Indication: PRODUCT USED FOR UNKNOWN INDICATION
     Dosage: UNK
     Route: 065
  3. VELAGLUCERASE ALFA [Suspect]
     Active Substance: VELAGLUCERASE ALFA
     Dosage: 60 INTERNATIONAL UNIT, Q2WEEKS
     Dates: start: 20160115
  4. VELAGLUCERASE ALFA [Suspect]
     Active Substance: VELAGLUCERASE ALFA
     Dosage: 2000 INTERNATIONAL UNIT, UNKNOWN
     Route: 065
     Dates: start: 20160115
  5. VELAGLUCERASE ALFA [Suspect]
     Active Substance: VELAGLUCERASE ALFA
     Dosage: 5 DOSAGE FORM, 2/WEEK
     Route: 065
     Dates: start: 20160115
  6. RAMIPRIL. [Concomitant]
     Active Substance: RAMIPRIL
     Indication: PRODUCT USED FOR UNKNOWN INDICATION
     Dosage: UNK
     Route: 065
  7. CEREZYME [Concomitant]
     Active Substance: IMIGLUCERASE
     Indication: PRODUCT USED FOR UNKNOWN INDICATION
     Route: 065
  8. VELAGLUCERASE ALFA [Suspect]
     Active Substance: VELAGLUCERASE ALFA
     Indication: GAUCHER^S DISEASE
     Dosage: 2000 INTERNATIONAL UNIT, 2X A WEEK
     Route: 065
     Dates: start: 20160115
  9. ZAVESCA [MIGLUSTAT] [Concomitant]
     Indication: PRODUCT USED FOR UNKNOWN INDICATION
     Route: 065

REACTIONS (19)
  - Type 2 diabetes mellitus [Unknown]
  - Eye haemorrhage [Recovered/Resolved]
  - Bone pain [Not Recovered/Not Resolved]
  - Fall [Recovering/Resolving]
  - Weight fluctuation [Not Recovered/Not Resolved]
  - Deep vein thrombosis [Unknown]
  - Dyspnoea [Recovering/Resolving]
  - Contusion [Recovered/Resolved]
  - Fatigue [Not Recovered/Not Resolved]
  - Hypertension [Recovered/Resolved]
  - Blood pressure increased [Unknown]
  - Abdominal pain [Not Recovered/Not Resolved]
  - Rib fracture [Recovering/Resolving]
  - Pain in extremity [Recovered/Resolved]
  - Swelling [Recovered/Resolved]
  - Arthralgia [Recovered/Resolved]
  - Oxygen saturation decreased [Recovering/Resolving]
  - Nausea [Not Recovered/Not Resolved]
  - Pain [Unknown]

NARRATIVE: CASE EVENT DATE: 2020
